FAERS Safety Report 24949827 (Version 2)
Quarter: 2025Q1

REPORT INFORMATION
  Report Type: Spontaneous
  Country: US (occurrence: US)
  Receive Date: 20250210
  Receipt Date: 20250224
  Transmission Date: 20250408
  Serious: Yes (Disabling, Other)
  Sender: APELLIS PHARMACEUTICALS
  Company Number: US-APELLIS-2025-APL-0000660

PATIENT

DRUGS (1)
  1. SYFOVRE [Suspect]
     Active Substance: PEGCETACOPLAN
     Indication: Dry age-related macular degeneration
     Route: 031
     Dates: start: 20241017, end: 20241017

REACTIONS (9)
  - Eyelid pain [Unknown]
  - Erythema of eyelid [Unknown]
  - Photophobia [Unknown]
  - Visual field defect [Unknown]
  - Swelling of eyelid [Unknown]
  - Post procedural complication [Unknown]
  - Injection site foreign body sensation in eye [Unknown]
  - Ocular procedural complication [Unknown]
  - Vitreous floaters [Unknown]

NARRATIVE: CASE EVENT DATE: 20241030
